FAERS Safety Report 8381748-3 (Version None)
Quarter: 2012Q2

REPORT INFORMATION
  Report Type: 
  Country: None (occurrence: None)
  Receive Date: 20120524
  Receipt Date: 20120515
  Transmission Date: 20120825
  Serious: No
  Sender: FDA-Public Use
  Company Number: US-BIOGENIDEC-2012BI017244

PATIENT
  Sex: Female

DRUGS (5)
  1. AVONEX [Suspect]
     Route: 030
     Dates: start: 20070501, end: 20070903
  2. AVONEX [Suspect]
     Route: 030
     Dates: start: 20080108, end: 20090801
  3. AVONEX [Suspect]
     Route: 030
     Dates: start: 20090829
  4. AVONEX [Suspect]
     Indication: MULTIPLE SCLEROSIS
     Route: 030
     Dates: start: 19970812, end: 19990224
  5. AVONEX [Suspect]
     Route: 030
     Dates: start: 20000810, end: 20010214

REACTIONS (4)
  - MUSCLE SPASTICITY [None]
  - MOTOR DYSFUNCTION [None]
  - MUSCULAR WEAKNESS [None]
  - MUSCLE SPASMS [None]
